FAERS Safety Report 25003371 (Version 1)
Quarter: 2025Q1

REPORT INFORMATION
  Report Type: Spontaneous
  Country: US (occurrence: US)
  Receive Date: 20250224
  Receipt Date: 20250224
  Transmission Date: 20250408
  Serious: No
  Sender: SANDOZ
  Company Number: US-SANDOZ-SDZ2025US011509

PATIENT
  Age: 44 Year
  Sex: Female

DRUGS (1)
  1. OMNITROPE [Suspect]
     Active Substance: SOMATROPIN
     Indication: Product used for unknown indication
     Dosage: 0.3 MG, QD
     Route: 065
     Dates: start: 2020

REACTIONS (3)
  - Withdrawal syndrome [Unknown]
  - Product use issue [Unknown]
  - Product dose omission issue [Unknown]
